FAERS Safety Report 9747242 (Version 2)
Quarter: 2013Q4

REPORT INFORMATION
  Report Type: Spontaneous
  Country: FI (occurrence: FI)
  Receive Date: 20131212
  Receipt Date: 20131212
  Transmission Date: 20140711
  Serious: Yes (Other)
  Sender: FDA-Public Use
  Company Number: FI-ROCHE-1287740

PATIENT
  Age: 15 Year
  Sex: Female

DRUGS (12)
  1. MABTHERA [Suspect]
     Indication: GRANULOMATOSIS WITH POLYANGIITIS
     Route: 065
     Dates: start: 20130128, end: 20130128
  2. MABTHERA [Suspect]
     Route: 065
     Dates: start: 20130212, end: 20130212
  3. CYCLOPHOSPHAMIDE [Suspect]
     Indication: GRANULOMATOSIS WITH POLYANGIITIS
     Route: 042
     Dates: start: 20130125, end: 20130128
  4. PREDNISOLON [Suspect]
     Indication: GRANULOMATOSIS WITH POLYANGIITIS
     Dosage: 40+20 MG
     Route: 065
     Dates: start: 2013
  5. SOLU-MEDROL [Concomitant]
     Indication: GRANULOMATOSIS WITH POLYANGIITIS
     Dosage: FOR THREE DAYS
     Route: 065
     Dates: start: 20130125, end: 20130127
  6. MESNA [Concomitant]
     Route: 065
     Dates: start: 20130125
  7. AMOXICILLIN [Concomitant]
     Route: 065
     Dates: start: 201301
  8. DOXICYCLIN [Concomitant]
     Route: 065
     Dates: start: 20130118
  9. TAZOCIN EF [Concomitant]
     Route: 065
     Dates: start: 20130124
  10. DIFLUCAN [Concomitant]
     Route: 065
     Dates: start: 20130124
  11. MERONEM [Concomitant]
  12. AZATHIOPRINE [Concomitant]
     Route: 065
     Dates: start: 201302

REACTIONS (4)
  - Leukopenia [Unknown]
  - Neutropenia [Recovered/Resolved]
  - Alopecia [Unknown]
  - Cushingoid [Unknown]
